APPROVED DRUG PRODUCT: TERAZOL 3
Active Ingredient: TERCONAZOLE
Strength: 80MG **Federal Register determination that product was not discontinued or withdrawn for safety or effectiveness reasons**
Dosage Form/Route: SUPPOSITORY;VAGINAL
Application: N019641 | Product #001
Applicant: JANSSEN PHARMACEUTICALS INC
Approved: May 24, 1988 | RLD: Yes | RS: No | Type: DISCN